FAERS Safety Report 8792803 (Version 2)
Quarter: 2012Q4

REPORT INFORMATION
  Report Type: 
  Country: DE (occurrence: DE)
  Receive Date: 20120918
  Receipt Date: 20121107
  Transmission Date: 20130627
  Serious: Yes (Hospitalization, Disabling, Other)
  Sender: FDA-Public Use
  Company Number: DE-JNJFOC-20120907738

PATIENT
  Age: 75 Year
  Sex: Male

DRUGS (14)
  1. XARELTO [Suspect]
     Indication: CEREBROVASCULAR ACCIDENT PROPHYLAXIS
     Route: 048
  2. XARELTO [Suspect]
     Indication: ATRIAL FIBRILLATION
     Route: 048
  3. ASS [Suspect]
     Indication: ATRIAL FIBRILLATION
     Dosage: Daily dose
     Route: 065
  4. ASS [Suspect]
     Indication: ANTICOAGULANT THERAPY
     Dosage: Daily dose
     Route: 065
  5. AMIODARON [Concomitant]
     Dosage: Daily dose
     Route: 065
  6. INSPRA [Concomitant]
     Dosage: Daily dose
     Route: 065
  7. CONCOR [Concomitant]
     Dosage: Daily dose
     Route: 065
  8. SIMVASTATIN [Concomitant]
     Route: 065
  9. RAMIPRIL [Concomitant]
     Route: 065
  10. EPLERENONE [Concomitant]
     Route: 065
  11. PANTOPRAZOLE [Concomitant]
     Route: 065
  12. FUROSEMIDE [Concomitant]
     Route: 065
  13. BENZYLPENICILLIN SODIUM [Concomitant]
     Route: 065
  14. GENTAMICIN SULPHATE [Concomitant]
     Route: 065

REACTIONS (16)
  - Subdural haematoma [Unknown]
  - Fall [Unknown]
  - Headache [Unknown]
  - Gait disturbance [Unknown]
  - Hemiparesis [Unknown]
  - Respiratory failure [Unknown]
  - Pupils unequal [Unknown]
  - Nervous system disorder [Unknown]
  - Pupillary reflex impaired [Unknown]
  - Nausea [Unknown]
  - Vomiting [Unknown]
  - Haemorrhage [Unknown]
  - Epilepsy [Unknown]
  - Melaena [Unknown]
  - Pneumonia [Unknown]
  - Intracranial pressure increased [Unknown]
